FAERS Safety Report 16286542 (Version 5)
Quarter: 2019Q4

REPORT INFORMATION
  Report Type: Spontaneous
  Country: US (occurrence: US)
  Receive Date: 20190508
  Receipt Date: 20191021
  Transmission Date: 20200122
  Serious: Yes (Other)
  Sender: FDA-Public Use
  Company Number: US-PFIZER INC-2019190138

PATIENT
  Age: 54 Year
  Sex: Female

DRUGS (1)
  1. XELJANZ XR [Suspect]
     Active Substance: TOFACITINIB CITRATE
     Indication: RHEUMATOID ARTHRITIS
     Dosage: 11 MG, UNK

REACTIONS (13)
  - Aphonia [Unknown]
  - Peripheral swelling [Unknown]
  - Arthralgia [Unknown]
  - Oropharyngeal pain [Unknown]
  - Infection [Unknown]
  - Cough [Unknown]
  - Vomiting [Unknown]
  - Rheumatoid arthritis [Not Recovered/Not Resolved]
  - Constipation [Unknown]
  - Hot flush [Unknown]
  - Fungal infection [Unknown]
  - Feeling hot [Unknown]
  - Insomnia [Unknown]
